FAERS Safety Report 7805652-1 (Version None)
Quarter: 2011Q4

REPORT INFORMATION
  Report Type: 
  Country: None (occurrence: None)
  Receive Date: 20111010
  Receipt Date: 20110929
  Transmission Date: 20120403
  Serious: Yes (Other)
  Sender: FDA-Public Use
  Company Number: JP-BRISTOL-MYERS SQUIBB COMPANY-16136533

PATIENT
  Age: 28 Year
  Sex: Female

DRUGS (3)
  1. CISPLATIN [Suspect]
     Indication: OVARIAN NEOPLASM
  2. BLEOMYCIN SULFATE [Suspect]
     Indication: OVARIAN NEOPLASM
  3. VEPESID [Suspect]
     Indication: OVARIAN NEOPLASM

REACTIONS (3)
  - LIVE BIRTH [None]
  - PREMATURE DELIVERY [None]
  - PREGNANCY [None]
